FAERS Safety Report 11302893 (Version 1)
Quarter: 2015Q3

REPORT INFORMATION
  Report Type: Spontaneous
  Country: US (occurrence: None)
  Receive Date: 20150723
  Receipt Date: 20150723
  Transmission Date: 20151125
  Serious: No
  Sender: FDA-Public Use
  Company Number: None

PATIENT
  Age: 9 Year
  Sex: Male

DRUGS (1)
  1. HUMIRA [Suspect]
     Active Substance: ADALIMUMAB
     Indication: UVEITIS
     Dosage: DOSE FORM: INJECTABLE  FREQUENCY Q O WEEK  DATES OF USE: HAS NOT STARTED TX YET
     Route: 058

REACTIONS (1)
  - Off label use [None]

NARRATIVE: CASE EVENT DATE: 20150721
